FAERS Safety Report 25728168 (Version 2)
Quarter: 2025Q3

REPORT INFORMATION
  Report Type: Spontaneous
  Country: US (occurrence: US)
  Receive Date: 20250826
  Receipt Date: 20250826
  Transmission Date: 20251021
  Serious: Yes (Other)
  Sender: PFIZER
  Company Number: US-PFIZER INC-202500167085

PATIENT
  Sex: Female

DRUGS (4)
  1. BICILLIN L-A [Suspect]
     Active Substance: PENICILLIN G BENZATHINE
     Indication: Erysipelas
  2. CLINDAMYCIN HYDROCHLORIDE [Suspect]
     Active Substance: CLINDAMYCIN HYDROCHLORIDE
  3. CEFTRIAXONE [Suspect]
     Active Substance: CEFTRIAXONE
  4. ZITHROMAX [Suspect]
     Active Substance: AZITHROMYCIN DIHYDRATE

REACTIONS (11)
  - Pneumonia [Unknown]
  - Pain of skin [Unknown]
  - Skin weeping [Unknown]
  - Erythema [Unknown]
  - Skin irritation [Unknown]
  - Skin infection [Unknown]
  - Skin disorder [Unknown]
  - Headache [Unknown]
  - Inflammation [Unknown]
  - Urinary tract disorder [Not Recovered/Not Resolved]
  - COVID-19 [Unknown]
